FAERS Safety Report 8822521 (Version 1)
Quarter: 2012Q4

REPORT INFORMATION
  Report Type: 
  Country: GB (occurrence: GB)
  Receive Date: 20121003
  Receipt Date: 20121003
  Transmission Date: 20130627
  Serious: Yes (Other)
  Sender: FDA-Public Use
  Company Number: GB-PFIZER INC-2012244093

PATIENT

DRUGS (7)
  1. IBUPROFEN [Suspect]
     Indication: ARTHRALGIA
     Dosage: 400 mg, UNK
     Route: 048
     Dates: start: 20090101, end: 20120901
  2. OMEPRAZOLE SODIUM [Suspect]
     Indication: DYSPEPSIA
     Dosage: 20 mg, UNK
     Route: 048
     Dates: start: 20090101, end: 20120901
  3. ALLOPURINOL [Concomitant]
  4. AMLODIPINE [Concomitant]
  5. ASPIRIN ^BAYER^ [Concomitant]
  6. ATORVASTATIN [Concomitant]
  7. FELODIPINE [Concomitant]

REACTIONS (3)
  - Renal impairment [Recovered/Resolved]
  - Haematuria [Recovered/Resolved]
  - Tubulointerstitial nephritis [Recovered/Resolved with Sequelae]
